FAERS Safety Report 6692946-9 (Version None)
Quarter: 2010Q2

REPORT INFORMATION
  Report Type: 
  Country: None (occurrence: None)
  Receive Date: 20100419
  Receipt Date: 20100402
  Transmission Date: 20101027
  Serious: Yes (Other)
  Sender: FDA-Public Use
  Company Number: 2010001175

PATIENT
  Age: 70 Year
  Sex: Male

DRUGS (1)
  1. TARCEVA [Suspect]
     Indication: LUNG CANCER METASTATIC
     Dosage: (150 MG,QD), ORAL
     Route: 048
     Dates: start: 20090826, end: 20100301

REACTIONS (2)
  - FUNGAL INFECTION [None]
  - RASH [None]
